FAERS Safety Report 8396221-6 (Version None)
Quarter: 2012Q2

REPORT INFORMATION
  Report Type: 
  Country: None (occurrence: None)
  Receive Date: 20120530
  Receipt Date: 20120524
  Transmission Date: 20120825
  Serious: Yes (Hospitalization)
  Sender: FDA-Public Use
  Company Number: FR-GLAXOSMITHKLINE-Z0012721A

PATIENT
  Sex: Female
  Weight: 75 kg

DRUGS (2)
  1. ARIXTRA [Concomitant]
     Indication: PULMONARY EMBOLISM
     Route: 042
     Dates: start: 20111104
  2. PAZOPANIB [Suspect]
     Indication: OVARIAN CANCER
     Dosage: 800MG PER DAY
     Route: 048
     Dates: start: 20100429

REACTIONS (1)
  - PULMONARY EMBOLISM [None]
